FAERS Safety Report 8000491-3 (Version None)
Quarter: 2011Q4

REPORT INFORMATION
  Report Type: 
  Country: None (occurrence: None)
  Receive Date: 20111222
  Receipt Date: 20111214
  Transmission Date: 20120403
  Serious: Yes (Other)
  Sender: FDA-Public Use
  Company Number: US-BAYER-2011-034992

PATIENT
  Sex: Female
  Weight: 71.655 kg

DRUGS (4)
  1. YAZ [Suspect]
     Indication: CONTRACEPTION
     Dosage: UNK
     Dates: start: 20080301, end: 20090901
  2. YAZ [Suspect]
     Indication: PREMENSTRUAL SYNDROME
  3. MELATONIN [Concomitant]
     Indication: INSOMNIA
     Dosage: UNK UNK, PRN
  4. PROAIR HFA [Concomitant]
     Dosage: UNK UNK, PRN
     Route: 045

REACTIONS (7)
  - ANXIETY [None]
  - INJURY [None]
  - CHOLECYSTITIS CHRONIC [None]
  - PAIN [None]
  - BILIARY DYSKINESIA [None]
  - EMOTIONAL DISTRESS [None]
  - GALLBLADDER INJURY [None]
